FAERS Safety Report 9106925 (Version 2)
Quarter: 2013Q1

REPORT INFORMATION
  Report Type: Spontaneous
  Country: AU (occurrence: AU)
  Receive Date: 20130221
  Receipt Date: 20130319
  Transmission Date: 20140127
  Serious: Yes (Life-Threatening, Hospitalization, Disabling, Other)
  Sender: FDA-Public Use
  Company Number: AU-B.I. PHARMACEUTICALS,INC./RIDGEFIELD-2013-AU-00158AU

PATIENT
  Age: 88 Year
  Sex: Female

DRUGS (7)
  1. PRADAXA [Suspect]
     Indication: ATRIAL FIBRILLATION
     Dosage: 110 MG
     Dates: start: 20110705
  2. BETALOC [Concomitant]
  3. METFORMIN [Concomitant]
  4. KARVEA [Concomitant]
  5. FRUSEMIDE [Concomitant]
  6. CRESTOR [Concomitant]
  7. DIGOXIN [Concomitant]

REACTIONS (5)
  - Haemorrhage intracranial [Not Recovered/Not Resolved]
  - Blindness [Unknown]
  - Hemianopia homonymous [Not Recovered/Not Resolved]
  - Road traffic accident [Unknown]
  - Incorrect dose administered [Unknown]
